FAERS Safety Report 4993740-7 (Version None)
Quarter: 2006Q2

REPORT INFORMATION
  Report Type: 
  Country: None (occurrence: None)
  Receive Date: 20060503
  Receipt Date: 20060503
  Transmission Date: 20061013
  Serious: Yes (Other)
  Sender: FDA-Public Use
  Company Number: None

PATIENT
  Age: 21 Year
  Sex: Male
  Weight: 120.2032 kg

DRUGS (1)
  1. TRAZODONE HCL [Suspect]
     Indication: DEPRESSION
     Dosage: 50 MG TWICE DAILY PO
     Route: 048
     Dates: start: 20060414, end: 20060502

REACTIONS (3)
  - MOBILITY DECREASED [None]
  - SUICIDAL IDEATION [None]
  - VOMITING [None]
